FAERS Safety Report 5629011-5 (Version None)
Quarter: 2008Q1

REPORT INFORMATION
  Report Type: 
  Country: None (occurrence: None)
  Receive Date: 20080214
  Receipt Date: 20080131
  Transmission Date: 20080703
  Serious: Yes (Death)
  Sender: FDA-Public Use
  Company Number: 080205-0000098

PATIENT
  Age: 20 Year
  Sex: Male

DRUGS (3)
  1. DESOXYN [Suspect]
     Indication: DRUG USE FOR UNKNOWN INDICATION
  2. MORPHINE [Suspect]
     Indication: DRUG USE FOR UNKNOWN INDICATION
  3. UNKNOWN CHEMICAL [Suspect]
     Indication: DRUG USE FOR UNKNOWN INDICATION

REACTIONS (1)
  - DRUG ABUSE [None]
